FAERS Safety Report 6728471-6 (Version None)
Quarter: 2010Q2

REPORT INFORMATION
  Report Type: 
  Country: None (occurrence: None)
  Receive Date: 20100517
  Receipt Date: 20100504
  Transmission Date: 20101027
  Serious: Yes (Other)
  Sender: FDA-Public Use
  Company Number: US-JNJFOC-20100502686

PATIENT
  Age: 3 Year

DRUGS (4)
  1. CHILDREN'S TYLENOL  LIQUID BUBBLEGUM [Suspect]
     Route: 048
  2. CHILDREN'S TYLENOL  LIQUID BUBBLEGUM [Suspect]
     Indication: DRUG USE FOR UNKNOWN INDICATION
     Route: 048
  3. CHILDREN'S TYLENOL PLUS FLU BUBBLEGUM [Suspect]
     Indication: DRUG USE FOR UNKNOWN INDICATION
     Route: 048
  4. CHILDREN'S ZYRTEC ALLERGY [Suspect]
     Indication: DRUG USE FOR UNKNOWN INDICATION
     Route: 048

REACTIONS (2)
  - PHARYNGITIS STREPTOCOCCAL [None]
  - PRODUCT QUALITY ISSUE [None]
